FAERS Safety Report 8242317 (Version 2)
Quarter: 2013Q3

REPORT INFORMATION
  Report Type: Spontaneous
  Country: US (occurrence: US)
  Receive Date: 20111114
  Receipt Date: 20130910
  Transmission Date: 20140515
  Serious: Yes (Hospitalization)
  Sender: FDA-Public Use
  Company Number: US-RANBAXY-2011US-50278

PATIENT
  Age: 32 Year
  Sex: Female

DRUGS (4)
  1. AMLODIPINE [Suspect]
     Indication: PRODUCT USED FOR UNKNOWN INDICATION
     Dosage: UNK
     Route: 048
  2. METOPROLOL [Suspect]
     Indication: PRODUCT USED FOR UNKNOWN INDICATION
     Dosage: UNK
     Route: 048
  3. INSULIN [Suspect]
     Indication: CARDIOGENIC SHOCK
     Dosage: 80 IU
     Route: 042
  4. INSULIN [Suspect]
     Dosage: 160-2100 IU/H
     Route: 042

REACTIONS (5)
  - Overdose [Unknown]
  - Cardiogenic shock [Unknown]
  - Hypoglycaemia [Recovered/Resolved]
  - Medication error [Unknown]
  - Incorrect dose administered [Unknown]
